FAERS Safety Report 22075873 (Version 1)
Quarter: 2023Q1

REPORT INFORMATION
  Report Type: Spontaneous
  Country: US (occurrence: US)
  Receive Date: 20230308
  Receipt Date: 20230308
  Transmission Date: 20230417
  Serious: No
  Sender: FDA-Public Use
  Company Number: US-G1 THERAPEUTICS-2023G1US0000028

PATIENT

DRUGS (15)
  1. COSELA [Suspect]
     Active Substance: TRILACICLIB DIHYDROCHLORIDE
     Indication: Myelosuppression
     Dosage: 358 MG ON DAY 1 ONLY
     Route: 065
     Dates: start: 20230116, end: 20230116
  2. TECENTRIQ [Concomitant]
     Active Substance: ATEZOLIZUMAB
     Indication: Small cell lung cancer
     Dosage: 1200 MG ON DAY 1
     Route: 065
     Dates: start: 20230116, end: 20230116
  3. ETOPOSIDE [Concomitant]
     Active Substance: ETOPOSIDE
     Indication: Small cell lung cancer
     Dosage: 154 MG (100 MG/M2) ON DAY 1, 2, AND 3
     Route: 065
     Dates: start: 20230116, end: 20230118
  4. CARBOPLATIN [Concomitant]
     Active Substance: CARBOPLATIN
     Indication: Small cell lung cancer
     Dosage: 410 MG (AUC5) ON DAY 1
     Route: 065
     Dates: start: 20230116, end: 20230116
  5. ATORVASTATIN [Concomitant]
     Active Substance: ATORVASTATIN
     Indication: Product used for unknown indication
     Dosage: 40 MG, DAILY AT BEDTIME
     Route: 048
  6. BREO ELLIPTA [Concomitant]
     Active Substance: FLUTICASONE FUROATE\VILANTEROL TRIFENATATE
     Indication: Product used for unknown indication
     Dosage: 100-25 MG; 1 INHALATION QD
     Route: 055
  7. FENOFIBRIC ACID [Concomitant]
     Active Substance: FENOFIBRIC ACID
     Indication: Product used for unknown indication
     Dosage: 135 MG, QD
     Route: 048
  8. IBANDRONATE SODIUM [Concomitant]
     Active Substance: IBANDRONATE SODIUM
     Indication: Product used for unknown indication
     Dosage: 150 MG MONTHLY
     Route: 048
  9. LEVETIRACETAM [Concomitant]
     Active Substance: LEVETIRACETAM
     Indication: Product used for unknown indication
     Dosage: 500 MG, BID
     Route: 048
  10. LISINOPRIL [Concomitant]
     Active Substance: LISINOPRIL
     Indication: Product used for unknown indication
     Dosage: 5 MG, QD
     Route: 048
  11. METFORMIN [Concomitant]
     Active Substance: METFORMIN HYDROCHLORIDE
     Indication: Product used for unknown indication
     Dosage: 500 MG, BID
     Route: 048
  12. MELOXICAM [Concomitant]
     Active Substance: MELOXICAM
     Indication: Product used for unknown indication
     Dosage: 15 MG, QD
     Route: 048
  13. NICOTINE TRANSDERMAL SYSTEM [Concomitant]
     Active Substance: NICOTINE
     Indication: Product used for unknown indication
     Dosage: 21 MG; 1 PATCH, QD
     Route: 062
  14. SENOKOT-S [Concomitant]
     Active Substance: DOCUSATE SODIUM\SENNOSIDES
     Indication: Product used for unknown indication
     Dosage: 8.6-50 MG, QD
     Route: 048
  15. SODIUM CHLORATE [Concomitant]
     Active Substance: SODIUM CHLORATE
     Indication: Product used for unknown indication
     Dosage: UNK, QD
     Route: 048

REACTIONS (1)
  - Neutrophil count decreased [Unknown]

NARRATIVE: CASE EVENT DATE: 20230128
